FAERS Safety Report 5896326-5 (Version None)
Quarter: 2008Q3

REPORT INFORMATION
  Report Type: 
  Country: None (occurrence: None)
  Receive Date: 20080924
  Receipt Date: 20070925
  Transmission Date: 20090109
  Serious: Yes (Other)
  Sender: FDA-Public Use
  Company Number: US-ASTRAZENECA-2007UW20426

PATIENT
  Age: 14829 Day
  Sex: Female
  Weight: 72.6 kg

DRUGS (4)
  1. SEROQUEL [Suspect]
     Route: 048
     Dates: start: 20070713
  2. TRILEPTAL [Concomitant]
  3. CELEXA [Concomitant]
  4. HALDOL [Concomitant]

REACTIONS (1)
  - TARDIVE DYSKINESIA [None]
